FAERS Safety Report 8394469-8 (Version None)
Quarter: 2012Q2

REPORT INFORMATION
  Report Type: 
  Country: None (occurrence: None)
  Receive Date: 20120530
  Receipt Date: 20090613
  Transmission Date: 20120825
  Serious: No
  Sender: FDA-Public Use
  Company Number: US-PFIZER INC-2009202003

PATIENT
  Sex: Female
  Weight: 102.96 kg

DRUGS (13)
  1. NEXIUM [Concomitant]
     Dosage: UNK
  2. LIPITOR [Concomitant]
     Dosage: UNK
  3. TRICOR [Concomitant]
     Dosage: UNK
  4. CYMBALTA [Concomitant]
     Dosage: UNK
  5. SEROQUEL [Interacting]
  6. PHENYLEPHRINE HYDROCHLORIDE [Suspect]
     Indication: SINUS DISORDER
     Dosage: 10 MG, UNK
  7. BACLOFEN [Concomitant]
     Dosage: UNK
  8. CHANTIX [Interacting]
     Indication: SMOKING CESSATION THERAPY
     Dosage: UNK
  9. CELEBREX [Concomitant]
     Dosage: UNK
  10. TRAMADOL [Concomitant]
     Dosage: UNK
  11. LORATADINE [Suspect]
     Indication: SINUS DISORDER
     Dosage: 10 MG, 1X/DAY
  12. LISINOPRIL [Concomitant]
     Dosage: UNK
  13. CLONAZEPAM [Concomitant]
     Dosage: UNK

REACTIONS (3)
  - DRUG INTERACTION [None]
  - DYSPNOEA [None]
  - INSOMNIA [None]
